FAERS Safety Report 24238053 (Version 4)
Quarter: 2024Q4

REPORT INFORMATION
  Report Type: Spontaneous
  Country: PT (occurrence: PT)
  Receive Date: 20240822
  Receipt Date: 20241004
  Transmission Date: 20250115
  Serious: Yes (Other)
  Sender: WAYLIS
  Company Number: PT-JNJFOC-20240813712

PATIENT
  Age: 59 Year
  Sex: Female

DRUGS (20)
  1. DIAZEPAM [Suspect]
     Active Substance: DIAZEPAM
     Indication: Alcohol withdrawal syndrome
     Dates: start: 202110
  2. DIAZEPAM [Suspect]
     Active Substance: DIAZEPAM
     Indication: Alcohol detoxification
  3. DIAZEPAM [Suspect]
     Active Substance: DIAZEPAM
     Indication: Alcoholism
  4. TIAPRIDE [Suspect]
     Active Substance: TIAPRIDE
     Indication: Alcohol withdrawal syndrome
     Dates: start: 202110, end: 202202
  5. TIAPRIDE [Suspect]
     Active Substance: TIAPRIDE
     Indication: Alcohol detoxification
  6. TIAPRIDE [Suspect]
     Active Substance: TIAPRIDE
     Indication: Alcoholism
  7. AMISULPRIDE [Suspect]
     Active Substance: AMISULPRIDE
     Indication: Alcohol withdrawal syndrome
     Dates: start: 202110, end: 202202
  8. AMISULPRIDE [Suspect]
     Active Substance: AMISULPRIDE
     Indication: Alcohol detoxification
  9. AMISULPRIDE [Suspect]
     Active Substance: AMISULPRIDE
     Indication: Alcoholism
  10. ESCITALOPRAM [Suspect]
     Active Substance: ESCITALOPRAM OXALATE
     Indication: Alcohol withdrawal syndrome
     Dates: start: 202110
  11. ESCITALOPRAM [Suspect]
     Active Substance: ESCITALOPRAM OXALATE
     Indication: Alcohol detoxification
  12. ESCITALOPRAM [Suspect]
     Active Substance: ESCITALOPRAM OXALATE
     Indication: Alcoholism
  13. LORAZEPAM [Suspect]
     Active Substance: LORAZEPAM
     Indication: Alcohol withdrawal syndrome
     Dates: start: 202110
  14. LORAZEPAM [Suspect]
     Active Substance: LORAZEPAM
     Indication: Alcohol detoxification
  15. LORAZEPAM [Suspect]
     Active Substance: LORAZEPAM
     Indication: Alcoholism
  16. TOPAMAX [Suspect]
     Active Substance: TOPIRAMATE
     Indication: Alcohol withdrawal syndrome
     Dates: start: 202110
  17. TOPAMAX [Suspect]
     Active Substance: TOPIRAMATE
     Indication: Alcohol detoxification
  18. DULOXETINE [Suspect]
     Active Substance: DULOXETINE
     Indication: Product used for unknown indication
  19. PREGABALIN [Concomitant]
     Active Substance: PREGABALIN
     Indication: Product used for unknown indication
  20. TRIHEXYPHENIDYL [Concomitant]
     Active Substance: TRIHEXYPHENIDYL
     Indication: Product used for unknown indication

REACTIONS (5)
  - Torticollis [Unknown]
  - Torticollis [Unknown]
  - Neck pain [Unknown]
  - Drug intolerance [Unknown]
  - Off label use [Unknown]

NARRATIVE: CASE EVENT DATE: 20211001
